FAERS Safety Report 20825340 (Version 3)
Quarter: 2022Q3

REPORT INFORMATION
  Report Type: Report from Study
  Country: AU (occurrence: AU)
  Receive Date: 20220513
  Receipt Date: 20220809
  Transmission Date: 20221026
  Serious: Yes (Hospitalization, Other)
  Sender: FDA-Public Use
  Company Number: AU-CELGENE-AUS-20220203621

PATIENT
  Age: 69 Year
  Sex: Female
  Weight: 76.4 kg

DRUGS (39)
  1. POMALIDOMIDE [Suspect]
     Active Substance: POMALIDOMIDE
     Indication: Plasma cell myeloma
     Dosage: 4 MILLIGRAM
     Route: 048
     Dates: start: 20210506, end: 20220131
  2. DEXAMETHASONE [Suspect]
     Active Substance: DEXAMETHASONE
     Indication: Plasma cell myeloma
     Dosage: FREQUENCY TEXT: NOT PROVIDED
     Route: 048
     Dates: start: 20210506, end: 20220128
  3. DEXAMETHASONE [Suspect]
     Active Substance: DEXAMETHASONE
     Dosage: FREQUENCY TEXT: NOT PROVIDED
     Route: 048
     Dates: start: 20220113, end: 20220203
  4. DEXAMETHASONE [Suspect]
     Active Substance: DEXAMETHASONE
     Indication: Plasma cell myeloma
     Route: 048
     Dates: start: 20210506, end: 20220128
  5. DEXAMETHASONE [Suspect]
     Active Substance: DEXAMETHASONE
     Route: 048
     Dates: start: 20220113, end: 20220203
  6. DARATUMUMAB [Suspect]
     Active Substance: DARATUMUMAB
     Indication: Plasma cell myeloma
     Dosage: FREQUENCY TEXT: NOT PROVIDED
     Route: 058
     Dates: start: 20210506, end: 20220113
  7. CALCIUM CARBONATE\CHOLECALCIFEROL [Concomitant]
     Active Substance: CALCIUM CARBONATE\CHOLECALCIFEROL
     Indication: Osteoporosis prophylaxis
     Dosage: 1 D
     Route: 048
     Dates: start: 20170901
  8. CALCIUM CARBONATE\CHOLECALCIFEROL [Concomitant]
     Active Substance: CALCIUM CARBONATE\CHOLECALCIFEROL
  9. INTRAGAM P [Concomitant]
     Active Substance: HUMAN IMMUNOGLOBULIN G
     Indication: Infection prophylaxis
     Dosage: 1 IN 1 M
     Route: 042
     Dates: start: 20210908
  10. INTRAGAM P [Concomitant]
     Active Substance: HUMAN IMMUNOGLOBULIN G
  11. ONDANSETRON [Concomitant]
     Active Substance: ONDANSETRON
     Indication: Nausea
     Dosage: AS REQUIRED
     Route: 048
     Dates: start: 20211110, end: 20220314
  12. ONDANSETRON [Concomitant]
     Active Substance: ONDANSETRON
  13. PIPERACILLIN SODIUM\TAZOBACTAM SODIUM [Concomitant]
     Active Substance: PIPERACILLIN SODIUM\TAZOBACTAM SODIUM
     Indication: Urinary tract infection
     Dosage: 1 IN 0.25 D
     Route: 042
     Dates: start: 20211110
  14. PIPERACILLIN SODIUM\TAZOBACTAM SODIUM [Concomitant]
     Active Substance: PIPERACILLIN SODIUM\TAZOBACTAM SODIUM
  15. FUROSEMIDE [Concomitant]
     Active Substance: FUROSEMIDE
     Indication: Hypervolaemia
     Dosage: 1 IN 1 D
     Route: 048
     Dates: start: 20211113, end: 20220315
  16. FUROSEMIDE [Concomitant]
     Active Substance: FUROSEMIDE
  17. VALGANCICLOVIR [Concomitant]
     Active Substance: VALGANCICLOVIR
     Dosage: 1 IN 0.5 D
     Route: 048
     Dates: start: 20211208
  18. VALGANCICLOVIR [Concomitant]
     Active Substance: VALGANCICLOVIR
     Indication: Cytomegalovirus infection
  19. MAGNESIUM [Concomitant]
     Active Substance: MAGNESIUM
     Indication: Hypomagnesaemia
     Dosage: 1 IN 0.25 D
     Route: 048
     Dates: start: 20211210, end: 20220310
  20. MAGNESIUM [Concomitant]
     Active Substance: MAGNESIUM
     Dosage: 1 IN 1 TOTAL
     Route: 042
     Dates: start: 20220217
  21. SULFAMETHOXAZOLE\TRIMETHOPRIM [Concomitant]
     Active Substance: SULFAMETHOXAZOLE\TRIMETHOPRIM
     Indication: Antifungal prophylaxis
     Dosage: 800/160MG
     Route: 048
     Dates: start: 20170801
  22. VITAMIN D [Concomitant]
     Active Substance: VITAMIN D NOS
     Indication: Osteoporosis prophylaxis
     Dosage: 1000 UNITS UNSPECIFIED
     Route: 048
     Dates: start: 20170901
  23. PANTOPRAZOLE [Concomitant]
     Active Substance: PANTOPRAZOLE
     Indication: Gastrooesophageal reflux prophylaxis
     Dosage: 40 MILLIGRAM
     Route: 048
     Dates: start: 20180101
  24. ZOLEDRONIC ACID [Concomitant]
     Active Substance: ZOLEDRONIC ACID
     Indication: Osteoporosis prophylaxis
     Dosage: FREQUENCY TEXT: NOT PROVIDED
     Route: 042
     Dates: start: 20180401
  25. LACTASE [Concomitant]
     Active Substance: LACTASE
     Indication: Lactose intolerance
     Dosage: 4000 UNITS UNSPECIFIED
     Route: 048
     Dates: start: 20190101
  26. AMLODIPINE\TELMISARTAN [Concomitant]
     Active Substance: AMLODIPINE\TELMISARTAN
     Indication: Hypertension
     Dosage: 40/5 MG
     Route: 048
     Dates: start: 20210512
  27. SYSTANE (HYPROMELLOSE 2910 (4000 MPA.S)) [Concomitant]
     Active Substance: HYPROMELLOSE 2910 (4000 MPA.S)
     Indication: Dry eye
     Dosage: FREQUENCY TEXT: AS REQUIRED?1 GTT, AS REQUIRED
     Route: 047
     Dates: start: 20210513
  28. APIXABAN [Concomitant]
     Active Substance: APIXABAN
     Indication: Pulmonary embolism
     Dosage: 20 MILLIGRAM
     Route: 048
     Dates: start: 20210819, end: 20220510
  29. APIXABAN [Concomitant]
     Active Substance: APIXABAN
     Indication: N-terminal prohormone brain natriuretic peptide increased
  30. APIXABAN [Concomitant]
     Active Substance: APIXABAN
     Indication: Deep vein thrombosis
  31. APIXABAN [Concomitant]
     Active Substance: APIXABAN
     Indication: Superficial vein thrombosis
  32. IMODIUM [Concomitant]
     Active Substance: LOPERAMIDE HYDROCHLORIDE
     Indication: Diarrhoea
     Dosage: FREQUENCY TEXT: AS REQUIRED?2-4 UNITS UNSPECIFIED
     Route: 048
     Dates: start: 20211002
  33. FILGRASTIM [Concomitant]
     Active Substance: FILGRASTIM
     Indication: Neutrophil count decreased
     Dosage: 480 MICROGRAM
     Route: 058
     Dates: start: 20211209, end: 20220201
  34. FILGRASTIM [Concomitant]
     Active Substance: FILGRASTIM
     Dosage: 300 MICROGRAM
     Route: 058
     Dates: start: 20220217
  35. IBUPROFEN [Concomitant]
     Active Substance: IBUPROFEN
     Indication: Neck pain
     Dosage: FREQUENCY TEXT: AS REQUIRED
     Route: 048
     Dates: start: 20211220
  36. METRONIDAZOLE [Concomitant]
     Active Substance: METRONIDAZOLE
     Indication: Clostridium difficile infection
     Dosage: 3600 MILLIGRAM?400 MG, 3 IN 1 DAY
     Route: 048
     Dates: start: 20211224
  37. DICLOFENAC [Concomitant]
     Active Substance: DICLOFENAC
     Indication: Neck pain
     Dosage: AS REQUIRED
     Route: 061
     Dates: start: 20211220
  38. TELMISARTAN [Concomitant]
     Active Substance: TELMISARTAN
     Indication: Hypertension
     Dosage: 6000 MILLIGRAM
     Route: 048
     Dates: start: 20210116
  39. TELMISARTAN [Concomitant]
     Active Substance: TELMISARTAN
     Dosage: 10 ML,1 IN 1 TOTAL)
     Route: 048
     Dates: start: 20220114, end: 20220301

REACTIONS (2)
  - Rhinovirus infection [Recovered/Resolved]
  - Cytomegalovirus infection [Recovering/Resolving]

NARRATIVE: CASE EVENT DATE: 20220131
